FAERS Safety Report 7215432-6 (Version None)
Quarter: 2011Q1

REPORT INFORMATION
  Report Type: 
  Country: None (occurrence: None)
  Receive Date: 20110107
  Receipt Date: 20101215
  Transmission Date: 20110831
  Serious: No
  Sender: FDA-Public Use
  Company Number: US-B.I. PHARMACEUTICALS,INC./RIDGEFIELD-2010-BP-14839BP

PATIENT
  Age: 76 Year
  Sex: Male

DRUGS (5)
  1. TRAZODONE [Concomitant]
     Indication: SLEEP DISORDER
  2. ZOLOFT [Concomitant]
     Indication: HEADACHE
  3. ASPIRIN [Concomitant]
     Indication: HEADACHE
  4. FLOMAX [Suspect]
     Indication: URINARY TRACT INFECTION
     Dosage: 0.4 MG
     Route: 048
     Dates: end: 20100101
  5. SONATA [Concomitant]
     Indication: SLEEP DISORDER

REACTIONS (4)
  - ERECTILE DYSFUNCTION [None]
  - SUICIDAL IDEATION [None]
  - LIBIDO DECREASED [None]
  - HOMICIDAL IDEATION [None]
